FAERS Safety Report 6766347-9 (Version None)
Quarter: 2010Q2

REPORT INFORMATION
  Report Type: 
  Country: None (occurrence: None)
  Receive Date: 20100611
  Receipt Date: 20100603
  Transmission Date: 20101027
  Serious: Yes (Other)
  Sender: FDA-Public Use
  Company Number: FR-AMGEN-QUU412865

PATIENT
  Age: 70 Year
  Sex: Male

DRUGS (2)
  1. ARANESP [Suspect]
     Indication: DRUG USE FOR UNKNOWN INDICATION
  2. CHLORAMBUCIL [Concomitant]

REACTIONS (1)
  - LEUKOENCEPHALOPATHY [None]
